FAERS Safety Report 18520268 (Version 7)
Quarter: 2021Q1

REPORT INFORMATION
  Report Type: Report from Study
  Country: US (occurrence: US)
  Receive Date: 20201118
  Receipt Date: 20210327
  Transmission Date: 20210419
  Serious: No
  Sender: FDA-Public Use
  Company Number: US-B.I. PHARMACEUTICALS,INC./RIDGEFIELD-2020-BI-062686

PATIENT
  Age: 78 Year
  Sex: Male

DRUGS (1)
  1. OFEV [Suspect]
     Active Substance: NINTEDANIB
     Indication: IDIOPATHIC PULMONARY FIBROSIS
     Route: 048
     Dates: start: 20201102

REACTIONS (6)
  - Asthenia [Not Recovered/Not Resolved]
  - Oropharyngeal pain [Unknown]
  - Pollakiuria [Unknown]
  - Extra dose administered [Unknown]
  - Decreased appetite [Unknown]
  - Nasal congestion [Unknown]

NARRATIVE: CASE EVENT DATE: 202011
